FAERS Safety Report 8799216 (Version 1)
Quarter: 2012Q4

REPORT INFORMATION
  Report Type: 
  Country: US (occurrence: US)
  Receive Date: 20120920
  Receipt Date: 20120920
  Transmission Date: 20130627
  Serious: No
  Sender: FDA-Public Use
  Company Number: US-TEVA-359367USA

PATIENT
  Age: 35 Year
  Sex: Male
  Weight: 68.1 kg

DRUGS (5)
  1. NUVIGIL [Suspect]
     Indication: FATIGUE
     Dosage: 150 Milligram Daily;
     Route: 048
     Dates: start: 20120515
  2. NUVIGIL [Suspect]
     Dosage: 250 Milligram Daily;
     Route: 048
     Dates: start: 20120113, end: 20120514
  3. NUVIGIL [Suspect]
     Dosage: 150 mg, 1/2 po daily
     Route: 048
     Dates: end: 20120112
  4. TYSABRI [Concomitant]
     Indication: MULTIPLE SCLEROSIS
     Route: 042
  5. CLONOPIN [Concomitant]
     Indication: ANXIETY
     Dosage: 1 Milligram Daily;
     Route: 048

REACTIONS (4)
  - Insomnia [Not Recovered/Not Resolved]
  - Psychomotor hyperactivity [Recovered/Resolved]
  - Drug effect decreased [Unknown]
  - Inappropriate schedule of drug administration [Unknown]
